FAERS Safety Report 14011979 (Version 1)
Quarter: 2017Q3

REPORT INFORMATION
  Report Type: Report from Study
  Country: US (occurrence: US)
  Receive Date: 20170926
  Receipt Date: 20170926
  Transmission Date: 20171128
  Serious: Yes (Hospitalization)
  Sender: FDA-Public Use
  Company Number: US-JNJFOC-20170515807

PATIENT
  Age: 81 Year
  Sex: Male

DRUGS (9)
  1. IMBRUVICA [Suspect]
     Active Substance: IBRUTINIB
     Indication: CHRONIC LYMPHOCYTIC LEUKAEMIA
     Dosage: 420 MG, QD
     Route: 048
     Dates: start: 20170506
  2. DOXAZOSIN [Concomitant]
     Active Substance: DOXAZOSIN\DOXAZOSIN MESYLATE
  3. IMBRUVICA [Suspect]
     Active Substance: IBRUTINIB
     Indication: CHRONIC LYMPHOCYTIC LEUKAEMIA
     Route: 048
     Dates: start: 20170505
  4. POTASSIUM [Concomitant]
     Active Substance: POTASSIUM
  5. LISINOPRIL. [Concomitant]
     Active Substance: LISINOPRIL
  6. MULTIVITAMINS [Concomitant]
     Active Substance: VITAMINS
  7. IMBRUVICA [Suspect]
     Active Substance: IBRUTINIB
     Indication: CHRONIC LYMPHOCYTIC LEUKAEMIA
     Dosage: 420 MG, QD
     Route: 048
     Dates: start: 20170509
  8. HCTZ [Concomitant]
     Active Substance: HYDROCHLOROTHIAZIDE
  9. LISINOPRIL HCTZ [Concomitant]
     Active Substance: HYDROCHLOROTHIAZIDE\LISINOPRIL

REACTIONS (11)
  - Fatigue [Not Recovered/Not Resolved]
  - Glaucoma [Recovering/Resolving]
  - Oral mucosal blistering [Recovered/Resolved]
  - Muscle spasms [Not Recovered/Not Resolved]
  - Subarachnoid haemorrhage [Unknown]
  - Headache [Unknown]
  - Vomiting [Unknown]
  - Increased tendency to bruise [Not Recovered/Not Resolved]
  - Constipation [Not Recovered/Not Resolved]
  - Gastrooesophageal reflux disease [Unknown]
  - Dyspepsia [Unknown]

NARRATIVE: CASE EVENT DATE: 2017
